FAERS Safety Report 8112590 (Version 4)
Quarter: 2013Q3

REPORT INFORMATION
  Report Type: Spontaneous
  Country: IL (occurrence: IL)
  Receive Date: 20110830
  Receipt Date: 20130812
  Transmission Date: 20140515
  Serious: Yes (Other)
  Sender: FDA-Public Use
  Company Number: IL-JNJFOC-20110811953

PATIENT
  Age: 59 Year
  Sex: Female

DRUGS (1)
  1. DOXORUBICIN HYDROCHLORIDE (DOXIL) [Suspect]
     Indication: KAPOSI^S SARCOMA
     Route: 042
     Dates: start: 200611

REACTIONS (2)
  - Squamous cell carcinoma of the oral cavity [Unknown]
  - Mucosal inflammation [Unknown]
